FAERS Safety Report 8375004-7 (Version None)
Quarter: 2012Q2

REPORT INFORMATION
  Report Type: 
  Country: None (occurrence: None)
  Receive Date: 20120521
  Receipt Date: 20120517
  Transmission Date: 20120825
  Serious: Yes (Other)
  Sender: FDA-Public Use
  Company Number: AL-ROCHE-678913

PATIENT
  Sex: Male
  Weight: 56.5 kg

DRUGS (8)
  1. PEGASYS [Suspect]
     Indication: HEPATITIS C
     Route: 058
  2. COPEGUS [Suspect]
     Indication: HEPATITIS C
     Dosage: FREQUENCY : DAILY
     Route: 048
  3. SACCHAROMYCES [Concomitant]
     Dates: start: 20091228, end: 20100121
  4. SACCHAROMYCES [Concomitant]
     Indication: DIARRHOEA
     Route: 048
     Dates: start: 20091028, end: 20091212
  5. COPEGUS [Suspect]
     Dosage: ON 28 DECEMBER 2009, DOSE WAS REDUCED TO 600 MG
     Route: 048
  6. PEGASYS [Suspect]
     Dosage: DOSE REDUCED
     Route: 058
  7. IMODIUM [Concomitant]
     Indication: DIARRHOEA
     Route: 048
     Dates: start: 20091028, end: 20091212
  8. IMODIUM [Concomitant]
     Dates: start: 20091228, end: 20100121

REACTIONS (1)
  - CHRONIC OBSTRUCTIVE PULMONARY DISEASE [None]
